FAERS Safety Report 12671087 (Version 1)
Quarter: 2016Q3

REPORT INFORMATION
  Report Type: Spontaneous
  Country: US (occurrence: None)
  Receive Date: 20160819
  Receipt Date: 20160819
  Transmission Date: 20161109
  Serious: Yes (Hospitalization)
  Sender: FDA-Public Use
  Company Number: None

PATIENT
  Age: 19 Year
  Sex: Female

DRUGS (3)
  1. PULMOZYME [Suspect]
     Active Substance: DORNASE ALFA
     Indication: CYSTIC FIBROSIS
     Route: 055
     Dates: start: 20150224
  2. TOBI PODHALER [Concomitant]
     Active Substance: TOBRAMYCIN
  3. CAYSTON [Concomitant]
     Active Substance: AZTREONAM

REACTIONS (2)
  - Cystic fibrosis [None]
  - Disease complication [None]

NARRATIVE: CASE EVENT DATE: 201608
